FAERS Safety Report 24211188 (Version 2)
Quarter: 2024Q3

REPORT INFORMATION
  Report Type: Spontaneous
  Country: DE (occurrence: DE)
  Receive Date: 20240814
  Receipt Date: 20240831
  Transmission Date: 20241017
  Serious: Yes (Other)
  Sender: TEVA
  Company Number: DE-TEVA-VS-3230904

PATIENT
  Age: 80 Year
  Sex: Female

DRUGS (4)
  1. ATORVASTATIN\EZETIMIBE [Suspect]
     Active Substance: ATORVASTATIN\EZETIMIBE
     Indication: Lipids increased
     Dosage: RATIOPHARM 10 MG/40 MG ,ONLY TAKEN 2 OR 3 TIMES
     Route: 065
     Dates: start: 202408
  2. ATORVASTATIN [Suspect]
     Active Substance: ATORVASTATIN
     Indication: Product used for unknown indication
     Dosage: MONO
     Route: 065
     Dates: end: 202408
  3. CANDESARTAN CILEXETIL [Concomitant]
     Active Substance: CANDESARTAN CILEXETIL
     Indication: Product used for unknown indication
     Route: 065
  4. AMLODIPINE\OLMESARTAN [Concomitant]
     Active Substance: AMLODIPINE\OLMESARTAN
     Indication: Blood pressure increased
     Dates: start: 20240809

REACTIONS (11)
  - Polyneuropathy [Unknown]
  - Dyspepsia [Unknown]
  - Vision blurred [Unknown]
  - Tinnitus [Unknown]
  - Cough [Unknown]
  - Muscle spasms [Unknown]
  - Intra-abdominal haematoma [Unknown]
  - Dyspnoea exertional [Unknown]
  - Fatigue [Unknown]
  - Cataract [Unknown]
  - Limb discomfort [Unknown]
